FAERS Safety Report 7344502-7 (Version None)
Quarter: 2011Q1

REPORT INFORMATION
  Report Type: 
  Country: None (occurrence: None)
  Receive Date: 20110308
  Receipt Date: 20110308
  Transmission Date: 20110831
  Serious: No
  Sender: FDA-Public Use
  Company Number: None

PATIENT
  Age: 60 Year
  Sex: Female
  Weight: 65.7716 kg

DRUGS (2)
  1. KEFZOL [Suspect]
     Indication: PROPHYLAXIS
     Dosage: 1 GM X1 IV
     Route: 042
  2. OMNIPAQUE 350 [Suspect]
     Indication: COMPUTERISED TOMOGRAM
     Dosage: 100 ML X1 IV
     Route: 042
     Dates: start: 20110304

REACTIONS (2)
  - WHEEZING [None]
  - TACHYPNOEA [None]
